FAERS Safety Report 13747136 (Version 15)
Quarter: 2018Q2

REPORT INFORMATION
  Report Type: Spontaneous
  Country: FR (occurrence: FR)
  Receive Date: 20170712
  Receipt Date: 20180612
  Transmission Date: 20180711
  Serious: Yes (Hospitalization, Congenital Anomaly, Other)
  Sender: FDA-Public Use
  Company Number: FR-JNJFOC-20170703685

PATIENT
  Age: 0 Day
  Sex: Female
  Weight: 2.2 kg

DRUGS (6)
  1. PREZISTA [Suspect]
     Active Substance: DARUNAVIR ETHANOLATE
     Indication: HIV INFECTION
     Route: 064
     Dates: start: 201605, end: 20170129
  2. EPZICOM [Suspect]
     Active Substance: ABACAVIR SULFATE\LAMIVUDINE
     Indication: HIV INFECTION
     Route: 064
     Dates: start: 201605, end: 20170129
  3. NORVIR [Suspect]
     Active Substance: RITONAVIR
     Indication: HIV INFECTION
     Dosage: THE CUMULATIVE DOSE WAS 275 UNITS.
     Route: 064
     Dates: start: 20160501, end: 20170129
  4. REYATAZ [Suspect]
     Active Substance: ATAZANAVIR SULFATE
     Indication: HIV INFECTION
     Route: 064
     Dates: start: 20160501, end: 20170129
  5. VIRAMUNE [Suspect]
     Active Substance: NEVIRAPINE
     Indication: PROPHYLAXIS AGAINST HIV INFECTION
     Route: 048
     Dates: start: 20170129, end: 20170212
  6. KIVEXA [Suspect]
     Active Substance: ABACAVIR SULFATE\LAMIVUDINE
     Indication: HIV INFECTION
     Dosage: 600MG/300 MG
     Route: 064
     Dates: start: 20160501, end: 20170129

REACTIONS (10)
  - Supernumerary nipple [Unknown]
  - Eosinophilia [Unknown]
  - Acoustic stimulation tests abnormal [Unknown]
  - Foetal growth restriction [Recovering/Resolving]
  - Dermatitis exfoliative generalised [Not Recovered/Not Resolved]
  - Low set ears [Unknown]
  - Breast disorder [Unknown]
  - Dilatation ventricular [Unknown]
  - Congenital naevus [Not Recovered/Not Resolved]
  - Foetal exposure during pregnancy [Recovered/Resolved]

NARRATIVE: CASE EVENT DATE: 20170129
